FAERS Safety Report 18376457 (Version 2)
Quarter: 2020Q4

REPORT INFORMATION
  Report Type: Report from Study
  Country: IL (occurrence: IL)
  Receive Date: 20201013
  Receipt Date: 20201109
  Transmission Date: 20210114
  Serious: Yes (Other)
  Sender: FDA-Public Use
  Company Number: IL-GLAXOSMITHKLINE-IL2020EME200570

PATIENT
  Age: 67 Year
  Sex: Male

DRUGS (3)
  1. MEPOLIZUMAB [Suspect]
     Active Substance: MEPOLIZUMAB
     Indication: ASTHMA
     Dosage: 100 MG
  2. FUSID (FUROSEMIDE) [Suspect]
     Active Substance: FUROSEMIDE
     Dosage: 80 MG, QD
  3. FUSID (FUROSEMIDE) [Suspect]
     Active Substance: FUROSEMIDE
     Indication: PULMONARY OEDEMA
     Dosage: 20 DF, BID

REACTIONS (4)
  - Hypotension [Recovered/Resolved]
  - Weight decreased [Unknown]
  - Pulmonary oedema [Unknown]
  - Catheterisation cardiac [Unknown]

NARRATIVE: CASE EVENT DATE: 202010
